FAERS Safety Report 6512135-8 (Version None)
Quarter: 2009Q4

REPORT INFORMATION
  Report Type: 
  Country: None (occurrence: None)
  Receive Date: 20091222
  Receipt Date: 20090609
  Transmission Date: 20100525
  Serious: No
  Sender: FDA-Public Use
  Company Number: US-ASTRAZENECA-2009UW14727

PATIENT
  Age: 73 Year
  Sex: Male
  Weight: 78 kg

DRUGS (6)
  1. CRESTOR [Suspect]
     Indication: HIGH DENSITY LIPOPROTEIN DECREASED
     Route: 048
     Dates: start: 20090201, end: 20090201
  2. CRESTOR [Suspect]
     Route: 048
     Dates: start: 20090201, end: 20090201
  3. NIASPAN [Suspect]
     Dates: start: 20090201
  4. SIMCOR [Suspect]
     Dates: start: 20090217, end: 20090309
  5. CLOPIDOGREL [Suspect]
     Indication: CARDIAC DISORDER
     Dates: start: 20090217
  6. ACETYLSALICYLIC ACID [Concomitant]

REACTIONS (3)
  - GAIT DISTURBANCE [None]
  - PRURITUS [None]
  - URTICARIA [None]
